FAERS Safety Report 6958966-1 (Version None)
Quarter: 2010Q3

REPORT INFORMATION
  Report Type: 
  Country: None (occurrence: None)
  Receive Date: 20100831
  Receipt Date: 20100820
  Transmission Date: 20110219
  Serious: Yes (Hospitalization)
  Sender: FDA-Public Use
  Company Number: ES-PFIZER INC-2010105584

PATIENT
  Age: 72 Year
  Sex: Male

DRUGS (6)
  1. ALDACTONE [Suspect]
     Dosage: 100 MG, 1X/DAY
     Route: 048
     Dates: start: 20090901, end: 20100619
  2. ENALAPRIL [Interacting]
     Dosage: 20 MG, 1X/DAY
     Route: 048
     Dates: start: 20090101, end: 20100619
  3. SEGURIL [Interacting]
     Dosage: 80 MG, 1X/DAY
     Route: 048
     Dates: start: 20090901, end: 20100619
  4. ACETYLSALICYLIC ACID [Concomitant]
     Dosage: 100 MG, 1X/DAY
     Route: 048
     Dates: start: 20090101
  5. FLECAINIDE ACETATE [Concomitant]
     Dosage: 50 MG, 1X/DAY
     Route: 048
     Dates: start: 20090101
  6. SUMIAL [Concomitant]
     Dosage: 40 MG, 1X/DAY
     Route: 048
     Dates: start: 20090101

REACTIONS (2)
  - DRUG INTERACTION [None]
  - HEPATIC ENCEPHALOPATHY [None]
